FAERS Safety Report 4867200-8 (Version None)
Quarter: 2005Q4

REPORT INFORMATION
  Report Type: 
  Country: None (occurrence: None)
  Receive Date: 20051227
  Receipt Date: 20051227
  Transmission Date: 20060501
  Serious: Yes (Hospitalization)
  Sender: FDA-Public Use
  Company Number: None

PATIENT
  Age: 65 Year
  Sex: Male
  Weight: 82.5 kg

DRUGS (2)
  1. ENALAPRIL MALEATE [Suspect]
  2. ETODOLAC [Concomitant]

REACTIONS (1)
  - ANGIONEUROTIC OEDEMA [None]
